FAERS Safety Report 8470576-6 (Version None)
Quarter: 2012Q2

REPORT INFORMATION
  Report Type: 
  Country: None (occurrence: None)
  Receive Date: 20120627
  Receipt Date: 20120625
  Transmission Date: 20120825
  Serious: Yes (Death)
  Sender: FDA-Public Use
  Company Number: PHEH2012US002212

PATIENT
  Sex: Female
  Weight: 99 kg

DRUGS (12)
  1. RECLAST [Suspect]
     Dosage: 5 MG YEARLY
     Dates: start: 20110101
  2. RECLAST [Suspect]
     Dosage: 5 MG YEARLY
     Route: 042
     Dates: start: 20120119
  3. TEGRETOL [Concomitant]
  4. CALCIUM CARBONATE [Concomitant]
  5. RECLAST [Suspect]
     Indication: OSTEOPOROSIS
     Dosage: 5 MG YEARLY
     Dates: start: 20090101
  6. MELOXICAM [Concomitant]
  7. DULCOLAX [Concomitant]
  8. MIRALAX [Concomitant]
  9. VITAMIN D [Concomitant]
  10. BACLOFEN [Concomitant]
  11. RECLAST [Suspect]
     Dosage: 5 MG YEARLY
     Dates: start: 20100101
  12. MULTIVITAMIN [Concomitant]

REACTIONS (1)
  - DEATH [None]
